FAERS Safety Report 4268861-7 (Version None)
Quarter: 2004Q1

REPORT INFORMATION
  Report Type: 
  Country: None (occurrence: None)
  Receive Date: 20040109
  Receipt Date: 20040105
  Transmission Date: 20041129
  Serious: Yes (Disabling)
  Sender: FDA-Public Use
  Company Number: HQWYE565308APR03

PATIENT
  Age: 42 Year
  Sex: Male

DRUGS (10)
  1. DIMETAPP [Suspect]
     Indication: NASOPHARYNGITIS
     Dosage: ORAL
     Route: 048
  2. DIMETAPP [Suspect]
     Indication: SINUS CONGESTION
     Dosage: ORAL
     Route: 048
  3. ALKA-SELTZER PLUS (ACETYLSALICYLIC ACID/CHLORPHENAMINE MALEATE/PHENYLP [Suspect]
     Indication: NASOPHARYNGITIS
     Dosage: ORAL
     Route: 048
     Dates: end: 19970125
  4. ALKA-SELTZER PLUS (ACETYLSALICYLIC ACID/CHLORPHENAMINE MALEATE/PHENYLP [Suspect]
     Indication: SINUS CONGESTION
     Dosage: ORAL
     Route: 048
     Dates: end: 19970125
  5. CONTAC [Suspect]
     Indication: NASOPHARYNGITIS
     Dosage: ORAL
     Route: 048
  6. CONTAC [Suspect]
     Indication: SINUS CONGESTION
     Dosage: ORAL
     Route: 048
  7. ROBITUSSIN CF (GUAIFENESIN/DEXTROMETHORPHAN/PHENYLPROPANOLAMINE, SYRUP [Suspect]
     Indication: NASOPHARYNGITIS
     Dosage: ORAL
     Route: 048
     Dates: end: 19970125
  8. ROBITUSSIN CF (GUAIFENESIN/DEXTROMETHORPHAN/PHENYLPROPANOLAMINE, SYRUP [Suspect]
     Indication: SINUS CONGESTION
     Dosage: ORAL
     Route: 048
     Dates: end: 19970125
  9. TAVIST D [Suspect]
     Indication: NASOPHARYNGITIS
     Dosage: ORAL
     Route: 048
  10. TAVIST D [Suspect]
     Indication: SINUS CONGESTION
     Dosage: ORAL
     Route: 048

REACTIONS (2)
  - CEREBROVASCULAR ACCIDENT [None]
  - INJURY [None]
